FAERS Safety Report 7396318-3 (Version None)
Quarter: 2011Q1

REPORT INFORMATION
  Report Type: 
  Country: None (occurrence: None)
  Receive Date: 20110331
  Receipt Date: 20110331
  Transmission Date: 20110831
  Serious: Yes (Other)
  Sender: FDA-Public Use
  Company Number: None

PATIENT
  Age: 58 Year
  Sex: Female
  Weight: 69.8539 kg

DRUGS (1)
  1. METOPROLOL SUCCINATE EXTENDED RELEASE [Suspect]
     Indication: ATRIAL FIBRILLATION
     Dosage: 1 TABLET, BY MOUTH 1X DAILY
     Route: 048

REACTIONS (10)
  - UNEVALUABLE EVENT [None]
  - FATIGUE [None]
  - PALPITATIONS [None]
  - CHEST DISCOMFORT [None]
  - CHEST PAIN [None]
  - EXERCISE TOLERANCE DECREASED [None]
  - DIZZINESS [None]
  - PRODUCT QUALITY ISSUE [None]
  - DYSPNOEA EXERTIONAL [None]
  - PRODUCT MEASURED POTENCY ISSUE [None]
